FAERS Safety Report 7114207-6 (Version None)
Quarter: 2010Q4

REPORT INFORMATION
  Report Type: 
  Country: None (occurrence: None)
  Receive Date: 20101119
  Receipt Date: 20101117
  Transmission Date: 20110411
  Serious: Yes (Other)
  Sender: FDA-Public Use
  Company Number: US-PFIZER INC-2010151325

PATIENT
  Sex: Male

DRUGS (4)
  1. CHANTIX [Suspect]
     Dosage: UNK
     Route: 048
     Dates: start: 20101101
  2. LISINOPRIL [Concomitant]
     Dosage: UNK
  3. TRAZODONE [Concomitant]
     Dosage: UNK
  4. SEROQUEL [Concomitant]
     Dosage: 600 MG, UNK
     Route: 048

REACTIONS (3)
  - ANGER [None]
  - DEPRESSION [None]
  - SCHIZOPHRENIA [None]
